FAERS Safety Report 8332128-8 (Version None)
Quarter: 2012Q2

REPORT INFORMATION
  Report Type: 
  Country: None (occurrence: None)
  Receive Date: 20120502
  Receipt Date: 20120419
  Transmission Date: 20120825
  Serious: Yes (Other)
  Sender: FDA-Public Use
  Company Number: US-MYLANLABS-2010AC000066

PATIENT
  Age: 56 Year
  Sex: Female

DRUGS (16)
  1. AMOXICILLIN [Concomitant]
  2. AUGMENTIN [Concomitant]
  3. FUROSEMIDE [Concomitant]
  4. LASIX [Concomitant]
  5. POTASSIUM CHLORIDE [Concomitant]
  6. ASPIRIN [Concomitant]
  7. AZITHROMYCIN [Concomitant]
  8. CELEBREX [Concomitant]
  9. IBUPROFEN [Concomitant]
  10. SINUS MEDICATION [Concomitant]
     Dosage: OTC
  11. PREMARIN [Concomitant]
  12. DARVOCET [Concomitant]
  13. POTASSIUM CHLORIDE [Concomitant]
  14. METOPROLOL TARTRATE [Concomitant]
  15. DIGOXIN [Suspect]
     Route: 048
     Dates: start: 20080121, end: 20080523
  16. LISINOPRIL [Concomitant]

REACTIONS (53)
  - DIZZINESS POSTURAL [None]
  - TOOTH INJURY [None]
  - BACK PAIN [None]
  - TYMPANIC MEMBRANE DISORDER [None]
  - DILATATION VENTRICULAR [None]
  - DILATATION ATRIAL [None]
  - VULVOVAGINAL DRYNESS [None]
  - CARDIOMYOPATHY [None]
  - CONFUSIONAL STATE [None]
  - SMEAR CERVIX ABNORMAL [None]
  - SINUS TACHYCARDIA [None]
  - ECONOMIC PROBLEM [None]
  - ILL-DEFINED DISORDER [None]
  - CARDIAC MONITORING [None]
  - FACE OEDEMA [None]
  - COUGH [None]
  - HYPERTENSION [None]
  - CHEST PAIN [None]
  - GARDNERELLA INFECTION [None]
  - CARDIAC VALVE DISEASE [None]
  - LEFT VENTRICULAR HYPERTROPHY [None]
  - CARDIAC STRESS TEST ABNORMAL [None]
  - CONDUCTION DISORDER [None]
  - LYMPHADENOPATHY [None]
  - EMOTIONAL DISTRESS [None]
  - INJURY [None]
  - ARTHRALGIA [None]
  - OESTROGEN DEFICIENCY [None]
  - FACIAL PAIN [None]
  - BRONCHITIS [None]
  - CARDIAC FAILURE CONGESTIVE [None]
  - EJECTION FRACTION DECREASED [None]
  - EAR PAIN [None]
  - NOCTURNAL DYSPNOEA [None]
  - BRAIN NATRIURETIC PEPTIDE INCREASED [None]
  - JOINT RANGE OF MOTION DECREASED [None]
  - ELECTROCARDIOGRAM ABNORMAL [None]
  - PAIN [None]
  - DYSPNOEA [None]
  - MUSCLE STRAIN [None]
  - POST PROCEDURAL COMPLICATION [None]
  - EUSTACHIAN TUBE DYSFUNCTION [None]
  - CHRONIC OBSTRUCTIVE PULMONARY DISEASE [None]
  - ECHOCARDIOGRAM ABNORMAL [None]
  - VENTRICULAR DYSFUNCTION [None]
  - TENDONITIS [None]
  - GINGIVAL DISORDER [None]
  - PERIODONTITIS [None]
  - VENTRICULAR HYPOKINESIA [None]
  - SINUS DISORDER [None]
  - PAIN IN JAW [None]
  - VAGINAL INFLAMMATION [None]
  - PAIN IN EXTREMITY [None]
